FAERS Safety Report 24914070 (Version 2)
Quarter: 2025Q3

REPORT INFORMATION
  Report Type: Report from Study
  Country: US (occurrence: US)
  Receive Date: 20250202
  Receipt Date: 20250829
  Transmission Date: 20251020
  Serious: Yes (Other)
  Sender: ABBVIE
  Company Number: US-ABBVIE-6110247

PATIENT
  Age: 70 Year
  Sex: Female

DRUGS (1)
  1. SKYRIZI [Suspect]
     Active Substance: RISANKIZUMAB-RZAA
     Indication: Psoriasis
     Route: 058
     Dates: start: 20240111

REACTIONS (11)
  - Skin cancer [Not Recovered/Not Resolved]
  - Hordeolum [Unknown]
  - Candida infection [Unknown]
  - Pruritus [Unknown]
  - Nausea [Unknown]
  - Oropharyngeal pain [Unknown]
  - Weight decreased [Unknown]
  - Ageusia [Recovering/Resolving]
  - Anosmia [Recovering/Resolving]
  - Feeding disorder [Recovering/Resolving]
  - Rash vesicular [Unknown]

NARRATIVE: CASE EVENT DATE: 20240101
